FAERS Safety Report 25949710 (Version 1)
Quarter: 2025Q4

REPORT INFORMATION
  Report Type: Spontaneous
  Country: CH (occurrence: CH)
  Receive Date: 20251022
  Receipt Date: 20251022
  Transmission Date: 20260117
  Serious: Yes (Other)
  Sender: ESPERION THERAPEUTICS
  Company Number: None

PATIENT

DRUGS (7)
  1. BEMPEDOIC ACID [Suspect]
     Active Substance: BEMPEDOIC ACID
     Indication: Product used for unknown indication
     Dosage: 1 DOSAGE FORM, QD (1 TABLET (180 MG TOTAL))
     Route: 048
     Dates: start: 202504
  2. CHOLECALCIFEROL [Concomitant]
     Active Substance: CHOLECALCIFEROL
     Indication: Product used for unknown indication
     Dosage: UNK
     Route: 065
  3. INSULIN LISPRO [Concomitant]
     Active Substance: INSULIN LISPRO
     Indication: Product used for unknown indication
     Dosage: UNK
     Route: 065
  4. ESTRADIOL F [Concomitant]
     Indication: Product used for unknown indication
     Dosage: UNK
     Route: 065
  5. MAGNESIUMCITRAT [Concomitant]
     Indication: Product used for unknown indication
     Dosage: UNK
     Route: 065
  6. PROGESTERONUM [Concomitant]
     Indication: Product used for unknown indication
     Dosage: UNK
     Route: 065
  7. INSULIN HUMAN [Concomitant]
     Active Substance: INSULIN HUMAN
     Indication: Product used for unknown indication
     Dosage: UNK
     Route: 065

REACTIONS (2)
  - Photophobia [Unknown]
  - Migraine [Unknown]

NARRATIVE: CASE EVENT DATE: 20250401
